FAERS Safety Report 4759269-6 (Version None)
Quarter: 2005Q3

REPORT INFORMATION
  Report Type: 
  Country: None (occurrence: None)
  Receive Date: 20050831
  Receipt Date: 20050817
  Transmission Date: 20060218
  Serious: Yes (Death)
  Sender: FDA-Public Use
  Company Number: 216984

PATIENT
  Age: 48 Year
  Sex: Female

DRUGS (9)
  1. MABTHERA (RITUXIMAB) CONC FOR SOLUTION FOR INFUSION [Suspect]
     Indication: B-CELL LYMPHOMA
     Dosage: 750 MG  ; 690 MG
     Dates: start: 20050629, end: 20050629
  2. MABTHERA (RITUXIMAB) CONC FOR SOLUTION FOR INFUSION [Suspect]
     Indication: B-CELL LYMPHOMA
     Dosage: 750 MG  ; 690 MG
     Dates: start: 20050802, end: 20050802
  3. IFOSFAMIDE [Suspect]
     Indication: B-CELL LYMPHOMA
     Dosage: 10000 MG, 9200 MG
     Dates: start: 20050630, end: 20050630
  4. IFOSFAMIDE [Suspect]
     Indication: B-CELL LYMPHOMA
     Dosage: 10000 MG, 9200 MG
     Dates: start: 20050803, end: 20050803
  5. CARBOPLATIN [Suspect]
     Indication: B-CELL LYMPHOMA
     Dosage: 800 MG
     Dates: start: 20050630, end: 20050630
  6. CARBOPLATIN [Suspect]
     Indication: B-CELL LYMPHOMA
     Dosage: 800 MG
     Dates: start: 20050803, end: 20050803
  7. ETOPOSIDE [Suspect]
     Indication: B-CELL LYMPHOMA
     Dosage: 200 MG, 184 MG, DAYS 1-3
     Dates: start: 20050629, end: 20050701
  8. ETOPOSIDE [Suspect]
     Indication: B-CELL LYMPHOMA
     Dosage: 200 MG, 184 MG, DAYS 1-3
     Dates: start: 20050802, end: 20050804
  9. G-CSF (FILGRASTIM) [Concomitant]

REACTIONS (4)
  - APLASIA [None]
  - CARDIO-RESPIRATORY ARREST [None]
  - SEPTIC SHOCK [None]
  - TACHYARRHYTHMIA [None]
